FAERS Safety Report 6046607-X (Version None)
Quarter: 2009Q1

REPORT INFORMATION
  Report Type: 
  Country: None (occurrence: None)
  Receive Date: 20090122
  Receipt Date: 20090115
  Transmission Date: 20090719
  Serious: Yes (Death)
  Sender: FDA-Public Use
  Company Number: PHHY2008JP19072

PATIENT
  Sex: Male
  Weight: 50 kg

DRUGS (3)
  1. EXJADE [Suspect]
     Indication: MYELODYSPLASTIC SYNDROME
     Dosage: 1000 MG, QD
     Route: 048
     Dates: start: 20080726, end: 20080730
  2. BLOPRESS [Concomitant]
     Dosage: 8 MG
     Route: 048
     Dates: start: 20061011, end: 20080729
  3. AMLODIPINE [Concomitant]
     Dosage: 5 MG
     Route: 048
     Dates: start: 20061207, end: 20080729

REACTIONS (2)
  - ALTERED STATE OF CONSCIOUSNESS [None]
  - SEPTIC SHOCK [None]
